FAERS Safety Report 9268114 (Version 1)
Quarter: 2013Q2

REPORT INFORMATION
  Report Type: Spontaneous
  Country: US (occurrence: US)
  Receive Date: 20130502
  Receipt Date: 20130502
  Transmission Date: 20140414
  Serious: No
  Sender: FDA-Public Use
  Company Number: US-ALEXION-A201201349

PATIENT
  Age: 24 Year
  Sex: Female
  Weight: 84.35 kg

DRUGS (8)
  1. SOLIRIS 300MG [Suspect]
     Indication: PAROXYSMAL NOCTURNAL HAEMOGLOBINURIA
     Dosage: 900 MG, Q2W
     Route: 042
     Dates: start: 20111118
  2. SOLIRIS 300MG [Suspect]
     Dosage: UNK
     Route: 042
     Dates: start: 201104
  3. SOLIRIS 300MG [Suspect]
     Dosage: UNK
     Route: 042
     Dates: start: 200904, end: 201004
  4. ADDERALL [Concomitant]
     Dosage: 20 MG, QD
  5. CLONAZEPAM [Concomitant]
     Dosage: 0.5-1 MG Q12, PRN
  6. ERGOCALCIFEROL [Concomitant]
     Dosage: 50000 IU, QW
  7. PROMETHAZINE [Concomitant]
     Indication: NAUSEA
     Dosage: 25 MG Q6H, PRN
  8. OMEPRAZOLE [Concomitant]
     Dosage: 20 MG, QD
     Route: 048

REACTIONS (12)
  - Vitamin B12 deficiency [Not Recovered/Not Resolved]
  - Vitamin D deficiency [Not Recovered/Not Resolved]
  - Viral upper respiratory tract infection [Recovered/Resolved]
  - Stress [Unknown]
  - Chromaturia [Unknown]
  - Dyspepsia [Unknown]
  - Nausea [Unknown]
  - Gastrooesophageal reflux disease [Recovering/Resolving]
  - Oropharyngeal pain [Unknown]
  - Fatigue [Unknown]
  - Headache [Unknown]
  - Abdominal pain [Unknown]
